FAERS Safety Report 18507232 (Version 1)
Quarter: 2020Q4

REPORT INFORMATION
  Report Type: Spontaneous
  Country: US (occurrence: US)
  Receive Date: 20201116
  Receipt Date: 20201116
  Transmission Date: 20210114
  Serious: No
  Sender: FDA-Public Use
  Company Number: US-TAKEDA-2020TUS045938

PATIENT
  Sex: Female

DRUGS (8)
  1. GATTEX [Suspect]
     Active Substance: TEDUGLUTIDE\WATER
     Dosage: UNK, QOD
     Route: 065
     Dates: start: 202009, end: 20201024
  2. GATTEX [Suspect]
     Active Substance: TEDUGLUTIDE\WATER
     Dosage: UNK, QOD
     Route: 065
     Dates: start: 202009, end: 20201024
  3. GATTEX [Suspect]
     Active Substance: TEDUGLUTIDE\WATER
     Indication: SHORT-BOWEL SYNDROME
     Dosage: UNK
     Route: 065
  4. GATTEX [Suspect]
     Active Substance: TEDUGLUTIDE\WATER
     Dosage: UNK, QOD
     Route: 065
     Dates: start: 202009, end: 20201024
  5. GATTEX [Suspect]
     Active Substance: TEDUGLUTIDE\WATER
     Indication: SHORT-BOWEL SYNDROME
     Dosage: UNK
     Route: 065
  6. GATTEX [Suspect]
     Active Substance: TEDUGLUTIDE\WATER
     Indication: SHORT-BOWEL SYNDROME
     Dosage: UNK
     Route: 065
  7. GATTEX [Suspect]
     Active Substance: TEDUGLUTIDE\WATER
     Indication: SHORT-BOWEL SYNDROME
     Dosage: UNK
     Route: 065
  8. GATTEX [Suspect]
     Active Substance: TEDUGLUTIDE\WATER
     Dosage: UNK, QOD
     Route: 065
     Dates: start: 202009, end: 20201024

REACTIONS (2)
  - Intentional product use issue [Unknown]
  - No adverse event [Unknown]
